FAERS Safety Report 18414975 (Version 1)
Quarter: 2020Q4

REPORT INFORMATION
  Report Type: Spontaneous
  Country: US (occurrence: US)
  Receive Date: 20201022
  Receipt Date: 20201022
  Transmission Date: 20210114
  Serious: Yes (Hospitalization)
  Sender: FDA-Public Use
  Company Number: US-GRANULES-US-2020GRALIT00012

PATIENT
  Age: 58 Year
  Sex: Female

DRUGS (18)
  1. DIPHENHYDRAMINE. [Suspect]
     Active Substance: DIPHENHYDRAMINE
     Indication: HEADACHE
     Route: 065
  2. LACOSAMIDE. [Concomitant]
     Active Substance: LACOSAMIDE
     Indication: HEADACHE
     Route: 042
  3. TOPIRAMATE. [Interacting]
     Active Substance: TOPIRAMATE
     Indication: PRODUCT USED FOR UNKNOWN INDICATION
     Route: 065
  4. MORPHINE [Interacting]
     Active Substance: MORPHINE
     Indication: RESPIRATORY DISORDER
     Route: 065
  5. AZITHROMYCIN ANHYDROUS. [Interacting]
     Active Substance: AZITHROMYCIN ANHYDROUS
     Indication: COVID-19 PNEUMONIA
     Route: 065
  6. ACETAMINOPHEN. [Suspect]
     Active Substance: ACETAMINOPHEN
     Indication: HEADACHE
     Route: 042
  7. PROMETHAZINE [Interacting]
     Active Substance: PROMETHAZINE HYDROCHLORIDE
     Indication: PRODUCT USED FOR UNKNOWN INDICATION
     Route: 065
  8. HYDROMORPHONE [Interacting]
     Active Substance: HYDROMORPHONE
     Indication: RESPIRATORY DISORDER
     Route: 065
  9. GABAPENTIN. [Concomitant]
     Active Substance: GABAPENTIN
     Indication: RESTLESS LEGS SYNDROME
     Route: 065
  10. PROCHLORPERAZINE. [Interacting]
     Active Substance: PROCHLORPERAZINE
     Indication: PRODUCT USED FOR UNKNOWN INDICATION
     Route: 065
  11. BUTALBITAL-ACETAMINOPHEN-CAFFEINE [Suspect]
     Active Substance: ACETAMINOPHEN\BUTALBITAL\CAFFEINE
     Indication: HEADACHE
     Route: 065
  12. TIZANIDINE. [Interacting]
     Active Substance: TIZANIDINE
     Indication: RESTLESS LEGS SYNDROME
     Route: 065
  13. LIDOCAINE. [Interacting]
     Active Substance: LIDOCAINE
     Indication: PAIN
     Route: 065
  14. FINGOLIMOD. [Interacting]
     Active Substance: FINGOLIMOD
     Indication: MULTIPLE SCLEROSIS
     Route: 065
  15. HYDROXYCHLOROQUINE [Interacting]
     Active Substance: HYDROXYCHLOROQUINE
     Indication: COVID-19 PNEUMONIA
     Route: 065
  16. GABAPENTIN. [Concomitant]
     Active Substance: GABAPENTIN
     Route: 065
  17. FREMANEZUMAB [Interacting]
     Active Substance: FREMANEZUMAB
     Indication: MIGRAINE
     Route: 065
  18. LIDOCAINE. [Interacting]
     Active Substance: LIDOCAINE
     Indication: MUSCULOSKELETAL STIFFNESS

REACTIONS (1)
  - Drug ineffective [Unknown]
